FAERS Safety Report 9411586 (Version 1)
Quarter: 2013Q3

REPORT INFORMATION
  Report Type: Spontaneous
  Country: US (occurrence: None)
  Receive Date: 20130718
  Receipt Date: 20130718
  Transmission Date: 20140515
  Serious: Yes (Other)
  Sender: FDA-Public Use
  Company Number: None

PATIENT
  Age: 73 Year
  Sex: Male

DRUGS (1)
  1. PRADAXA [Suspect]
     Dosage: 150 MG CAP  1 DAILY  ORAL
     Route: 048
     Dates: start: 201112, end: 201204

REACTIONS (3)
  - Confusional state [None]
  - Constipation [None]
  - Diarrhoea [None]
